FAERS Safety Report 6730886-7 (Version None)
Quarter: 2010Q2

REPORT INFORMATION
  Report Type: 
  Country: None (occurrence: None)
  Receive Date: 20100518
  Receipt Date: 20100506
  Transmission Date: 20101027
  Serious: Yes (Other)
  Sender: FDA-Public Use
  Company Number: PHHY2010SI29925

PATIENT
  Sex: Male

DRUGS (1)
  1. ELIDEL [Suspect]
     Indication: DERMATITIS ATOPIC
     Route: 061

REACTIONS (4)
  - APPLICATION SITE ERYTHEMA [None]
  - APPLICATION SITE PAPULES [None]
  - APPLICATION SITE PRURITUS [None]
  - WRONG TECHNIQUE IN DRUG USAGE PROCESS [None]
